FAERS Safety Report 18111248 (Version 2)
Quarter: 2020Q4

REPORT INFORMATION
  Report Type: Spontaneous
  Country: US (occurrence: US)
  Receive Date: 20200804
  Receipt Date: 20201007
  Transmission Date: 20210113
  Serious: Yes (Hospitalization)
  Sender: FDA-Public Use
  Company Number: US-SA-2020SA124434

PATIENT

DRUGS (2)
  1. DUPIXENT [Suspect]
     Active Substance: DUPILUMAB
     Indication: DERMATITIS ATOPIC
     Dosage: 300 MG, QOW
     Route: 058
     Dates: start: 2020
  2. DUPIXENT [Suspect]
     Active Substance: DUPILUMAB
     Indication: DERMATITIS
     Dosage: 300 MG, QOW
     Route: 058
     Dates: start: 20200407, end: 20200421

REACTIONS (8)
  - Hospitalisation [Recovered/Resolved]
  - Pain of skin [Unknown]
  - Dermatitis atopic [Recovering/Resolving]
  - Skin fissures [Unknown]
  - Constipation [Recovering/Resolving]
  - Skin ulcer [Unknown]
  - Skin ulcer haemorrhage [Unknown]
  - Eczema [Unknown]

NARRATIVE: CASE EVENT DATE: 2020
